FAERS Safety Report 12220838 (Version 1)
Quarter: 2016Q1

REPORT INFORMATION
  Report Type: Spontaneous
  Country: US (occurrence: US)
  Receive Date: 20160330
  Receipt Date: 20160330
  Transmission Date: 20160526
  Serious: No
  Sender: FDA-Public Use
  Company Number: US-DRREDDYS-USA/USA/16/0077634

PATIENT
  Age: 12 Year
  Sex: Male
  Weight: 51.7 kg

DRUGS (1)
  1. MERCAPTOPURINE. [Suspect]
     Active Substance: MERCAPTOPURINE
     Indication: COLITIS ULCERATIVE
     Dosage: 75 MG, DAILY

REACTIONS (1)
  - Bone marrow failure [Recovered/Resolved with Sequelae]

NARRATIVE: CASE EVENT DATE: 201508
